FAERS Safety Report 25193898 (Version 3)
Quarter: 2025Q2

REPORT INFORMATION
  Report Type: Report from Study
  Country: US (occurrence: US)
  Receive Date: 20250414
  Receipt Date: 20250506
  Transmission Date: 20250717
  Serious: Yes (Hospitalization, Other)
  Sender: ABBVIE
  Company Number: US-ABBVIE-6216602

PATIENT
  Age: 39 Year
  Sex: Male
  Weight: 120.2 kg

DRUGS (3)
  1. HUMIRA [Suspect]
     Active Substance: ADALIMUMAB
     Indication: Crohn^s disease
     Dosage: END DATE JUN 2018
     Route: 058
     Dates: start: 2017
  2. DICYCLOMINE [Concomitant]
     Active Substance: DICYCLOMINE HYDROCHLORIDE
     Indication: Abdominal pain upper
  3. PANTOPRAZOLE [Concomitant]
     Active Substance: PANTOPRAZOLE
     Indication: Gastrooesophageal reflux disease

REACTIONS (10)
  - Atrial thrombosis [Recovering/Resolving]
  - Cerebrovascular accident [Recovered/Resolved]
  - Myocardial infarction [Recovered/Resolved]
  - Product quality issue [Unknown]
  - Crohn^s disease [Recovered/Resolved]
  - Hand deformity [Recovered/Resolved]
  - Tethered oral tissue [Recovered/Resolved]
  - Haematemesis [Recovered/Resolved]
  - Gait disturbance [Unknown]
  - Muscular weakness [Recovered/Resolved]

NARRATIVE: CASE EVENT DATE: 20170101
